FAERS Safety Report 5360308-2 (Version None)
Quarter: 2007Q2

REPORT INFORMATION
  Report Type: 
  Country: None (occurrence: None)
  Receive Date: 20070614
  Receipt Date: 20070531
  Transmission Date: 20071010
  Serious: Yes (Death, Other)
  Sender: FDA-Public Use
  Company Number: 157153USA

PATIENT
  Age: 16 Year
  Sex: 0

DRUGS (2)
  1. PROPOFOL [Suspect]
     Indication: CANCER PAIN
     Dosage: INTRAVENOUS (NOT OTHERWISE  SPECIFIED)
     Route: 042
     Dates: start: 19930101
  2. OPIODS (NOS) [Concomitant]

REACTIONS (3)
  - AGITATION [None]
  - MUSCLE TWITCHING [None]
  - TETANY [None]
